FAERS Safety Report 5923599-2 (Version None)
Quarter: 2008Q3

REPORT INFORMATION
  Report Type: 
  Country: None (occurrence: None)
  Receive Date: 20080909
  Receipt Date: 20080416
  Transmission Date: 20090109
  Serious: Yes (Hospitalization)
  Sender: FDA-Public Use
  Company Number: 163-20785-08040177

PATIENT
  Age: 66 Year
  Sex: Male
  Weight: 108.5 kg

DRUGS (26)
  1. THALOMID [Suspect]
     Indication: MULTIPLE MYELOMA
     Dosage: 100 MG, DAILY, ORAL ; 200 MG, DAILY, ORAL
     Route: 048
     Dates: end: 20080316
  2. THALOMID [Suspect]
     Indication: MULTIPLE MYELOMA
     Dosage: 100 MG, DAILY, ORAL ; 200 MG, DAILY, ORAL
     Route: 048
     Dates: start: 20040921
  3. DEXAMETHASONE TAB [Suspect]
     Indication: MULTIPLE MYELOMA
     Dosage: 20 MG, DAYS 1-4 AND 8-11 EVERY 28 DAYS, ORAL ; 40 MG
     Route: 048
     Dates: end: 20060303
  4. DEXAMETHASONE TAB [Suspect]
     Indication: MULTIPLE MYELOMA
     Dosage: 20 MG, DAYS 1-4 AND 8-11 EVERY 28 DAYS, ORAL ; 40 MG
     Route: 048
     Dates: start: 20040921
  5. VELCADE [Suspect]
     Indication: MULTIPLE MYELOMA
     Dosage: 1 MG/M2 ; 1 MG/M2
     Dates: end: 20060303
  6. VELCADE [Suspect]
     Indication: MULTIPLE MYELOMA
     Dosage: 1 MG/M2 ; 1 MG/M2
     Dates: start: 20040918
  7. CISPLATIN [Suspect]
     Indication: MULTIPLE MYELOMA
     Dosage: 7.5 MG/M2 ; 10 MG/M2
     Dates: end: 20050829
  8. CISPLATIN [Suspect]
     Indication: MULTIPLE MYELOMA
     Dosage: 7.5 MG/M2 ; 10 MG/M2
     Dates: start: 20040921
  9. ADRIAMYCIN PFS [Suspect]
     Indication: MULTIPLE MYELOMA
     Dosage: 7.5 MG/M2 ; 10 MG/M2
     Dates: end: 20050829
  10. ADRIAMYCIN PFS [Suspect]
     Indication: MULTIPLE MYELOMA
     Dosage: 7.5 MG/M2 ; 10 MG/M2
     Dates: start: 20040921
  11. CYCLOPHOSPHAMIDE [Suspect]
     Indication: MULTIPLE MYELOMA
     Dosage: 300 MG/M2 ; 400 MG/M2
     Dates: end: 20050829
  12. CYCLOPHOSPHAMIDE [Suspect]
     Indication: MULTIPLE MYELOMA
     Dosage: 300 MG/M2 ; 400 MG/M2
     Dates: start: 20040921
  13. ETOPOSIDE [Suspect]
     Indication: MULTIPLE MYELOMA
     Dosage: 30 MG/M2 ; 40 MG/M2
     Dates: end: 20050829
  14. ETOPOSIDE [Suspect]
     Indication: MULTIPLE MYELOMA
     Dosage: 30 MG/M2 ; 40 MG/M2
     Dates: start: 20040921
  15. MELPHALAN (MELPHALAN) [Suspect]
     Indication: MULTIPLE MYELOMA
     Dosage: 200 MG/M2 ; 200 MG/M2
     Dates: end: 20050303
  16. MELPHALAN (MELPHALAN) [Suspect]
     Indication: MULTIPLE MYELOMA
     Dosage: 200 MG/M2 ; 200 MG/M2
     Dates: start: 20041229
  17. VALTREX (VALACICLOVIR HYDROCHLORIDE) (TABLETS) [Concomitant]
  18. LEVAQUIN [Concomitant]
  19. FLOMAX (TAMSULOSIN HYDROCHLORIDE) (TABLETS) [Concomitant]
  20. FOLIC ACID (FOLIC ACID) (TABLETS) [Concomitant]
  21. MULTIVITAMINS (MULTIVITAMINS) (TABLETS) [Concomitant]
  22. LOVENOX [Concomitant]
  23. PROSCAR (RANITIDINE HYDROCHLORIDE) (TABLETS) [Concomitant]
  24. ZANTAC (RANITIDINE HYDROCHLORIDE) (TABLETS) [Concomitant]
  25. CALCIUM (CALCIUM) (TABLETS) [Concomitant]
  26. ALLEGRA [Concomitant]

REACTIONS (1)
  - PNEUMONIA [None]
